FAERS Safety Report 11536355 (Version 1)
Quarter: 2015Q3

REPORT INFORMATION
  Report Type: Spontaneous
  Country: US (occurrence: None)
  Receive Date: 20150921
  Receipt Date: 20150921
  Transmission Date: 20151125
  Serious: Yes (Other)
  Sender: FDA-Public Use
  Company Number: None

PATIENT
  Age: 60 Year
  Sex: Female

DRUGS (1)
  1. GLATOPA [Suspect]
     Active Substance: GLATIRAMER ACETATE
     Indication: MULTIPLE SCLEROSIS
     Dosage: SQ
     Route: 058
     Dates: start: 20150816

REACTIONS (3)
  - Pruritus [None]
  - Injection site pain [None]
  - Rash [None]

NARRATIVE: CASE EVENT DATE: 20150918
